FAERS Safety Report 8056523-X (Version None)
Quarter: 2012Q1

REPORT INFORMATION
  Report Type: 
  Country: None (occurrence: None)
  Receive Date: 20120119
  Receipt Date: 20111017
  Transmission Date: 20120608
  Serious: Yes (Hospitalization)
  Sender: FDA-Public Use
  Company Number: US-SANOFI-AVENTIS-2011SA069236

PATIENT
  Age: 59 Year
  Sex: Female

DRUGS (13)
  1. GLIMEPIRIDE [Concomitant]
     Indication: TYPE 2 DIABETES MELLITUS
     Dates: end: 20101111
  2. INSULIN DETEMIR [Concomitant]
     Indication: TYPE 2 DIABETES MELLITUS
     Dates: start: 20101019
  3. CHOLESTEROL- AND TRIGLYCERIDE REDUCERS [Concomitant]
  4. MECLIZINE [Suspect]
     Dates: start: 20110204
  5. GLIMEPIRIDE [Concomitant]
     Dates: start: 20101112
  6. DIURETICS [Concomitant]
  7. BETA BLOCKING AGENTS [Concomitant]
  8. ORAL ANTIDIABETICS [Concomitant]
     Indication: TYPE 2 DIABETES MELLITUS
     Dates: start: 20100729
  9. ANGIOTENSIN II [Concomitant]
  10. METFORMIN HYDROCHLORIDE [Concomitant]
     Indication: TYPE 2 DIABETES MELLITUS
  11. PLATELET AGGREGATION INHIBITORS [Concomitant]
  12. ORGANIC NITRATES [Concomitant]
  13. FUROSEMIDE [Suspect]
     Route: 065

REACTIONS (1)
  - ORTHOSTATIC HYPOTENSION [None]
